FAERS Safety Report 8282943-4 (Version None)
Quarter: 2012Q2

REPORT INFORMATION
  Report Type: 
  Country: None (occurrence: None)
  Receive Date: 20120413
  Receipt Date: 20120404
  Transmission Date: 20120825
  Serious: Yes (Other)
  Sender: FDA-Public Use
  Company Number: US-ASTRAZENECA-2012SE22549

PATIENT
  Age: 62 Year
  Sex: Female

DRUGS (4)
  1. TRAMADOYL [Concomitant]
     Route: 065
  2. ALPRAZOLAM [Concomitant]
     Route: 065
  3. PLAVIX [Concomitant]
     Route: 065
  4. CRESTOR [Suspect]
     Route: 048

REACTIONS (1)
  - BREAST CANCER [None]
